FAERS Safety Report 5034005-7 (Version None)
Quarter: 2006Q2

REPORT INFORMATION
  Report Type: 
  Country: None (occurrence: None)
  Receive Date: 20060626
  Receipt Date: 20060613
  Transmission Date: 20061013
  Serious: Yes (Hospitalization)
  Sender: FDA-Public Use
  Company Number: PHBS2006JP08943

PATIENT
  Age: 47 Year
  Sex: Female

DRUGS (1)
  1. AREDIA [Suspect]
     Indication: BREAST CANCER
     Route: 042

REACTIONS (2)
  - OSTEOMYELITIS [None]
  - OSTEONECROSIS [None]
